FAERS Safety Report 8286218-9 (Version None)
Quarter: 2012Q2

REPORT INFORMATION
  Report Type: 
  Country: None (occurrence: None)
  Receive Date: 20120416
  Receipt Date: 20120410
  Transmission Date: 20120825
  Serious: No
  Sender: FDA-Public Use
  Company Number: US-PFIZER INC-2011104128

PATIENT
  Sex: Female
  Weight: 81.633 kg

DRUGS (4)
  1. EFFEXOR XR [Suspect]
     Dosage: 375 MG, DAILY
     Dates: start: 20100101
  2. EFFEXOR XR [Suspect]
     Indication: DEPRESSION
     Dosage: 75 MG, 3X/DAY
     Dates: end: 20100101
  3. KLONOPIN [Concomitant]
     Indication: ANXIETY
     Dosage: 1 MG, 1X/DAY
  4. ABILIFY [Concomitant]
     Indication: DEPRESSION
     Dosage: 2 MG, 1X/DAY
     Dates: start: 20100101

REACTIONS (1)
  - DEPRESSION [None]
